FAERS Safety Report 7867771-3 (Version None)
Quarter: 2011Q4

REPORT INFORMATION
  Report Type: 
  Country: None (occurrence: None)
  Receive Date: 20111028
  Receipt Date: 20111019
  Transmission Date: 20120403
  Serious: Yes (Other)
  Sender: FDA-Public Use
  Company Number: US-ASTRAZENECA-2010SE56987

PATIENT
  Age: 69 Year
  Sex: Female

DRUGS (2)
  1. TOPROL-XL [Suspect]
     Route: 048
  2. CRESTOR [Suspect]
     Route: 048

REACTIONS (5)
  - CARDIAC FAILURE [None]
  - DIABETES MELLITUS [None]
  - DYSPHONIA [None]
  - RENAL FAILURE [None]
  - OROPHARYNGEAL PAIN [None]
